FAERS Safety Report 17662389 (Version 3)
Quarter: 2020Q3

REPORT INFORMATION
  Report Type: Report from Study
  Country: DE (occurrence: DE)
  Receive Date: 20200413
  Receipt Date: 20200814
  Transmission Date: 20201102
  Serious: Yes (Hospitalization)
  Sender: FDA-Public Use
  Company Number: DE-JNJFOC-20200405391

PATIENT
  Age: 6 Decade
  Sex: Female

DRUGS (7)
  1. ROACTEMRA [Concomitant]
     Active Substance: TOCILIZUMAB
     Dates: start: 201411, end: 201606
  2. HUMIRA [Concomitant]
     Active Substance: ADALIMUMAB
     Dates: start: 201406, end: 201410
  3. SIMPONI [Suspect]
     Active Substance: GOLIMUMAB
     Indication: RHEUMATOID ARTHRITIS
     Route: 058
     Dates: start: 201607
  4. METHOTREXATE (METHOTREXATE SODIUM) [Suspect]
     Active Substance: METHOTREXATE SODIUM
     Indication: RHEUMATOID ARTHRITIS
     Dates: start: 201607
  5. LEFEX                              /01278901/ [Concomitant]
     Indication: RHEUMATOID ARTHRITIS
  6. CIMZIA [Concomitant]
     Active Substance: CERTOLIZUMAB PEGOL
     Dates: start: 201212, end: 201403
  7. ENBREL [Concomitant]
     Active Substance: ETANERCEPT
     Dates: start: 201403, end: 201406

REACTIONS (1)
  - Upper gastrointestinal haemorrhage [Recovered/Resolved]

NARRATIVE: CASE EVENT DATE: 20190330
